FAERS Safety Report 6158357-X (Version None)
Quarter: 2009Q2

REPORT INFORMATION
  Report Type: 
  Country: None (occurrence: None)
  Receive Date: 20090417
  Receipt Date: 20090407
  Transmission Date: 20091009
  Serious: Yes (Other)
  Sender: FDA-Public Use
  Company Number: IT-NOVOPROD-286032

PATIENT
  Sex: Female
  Weight: 1.65 kg

DRUGS (2)
  1. NOVOLOG [Suspect]
     Indication: DIABETES MELLITUS
     Route: 064
  2. NOVOLOG [Suspect]
     Route: 064

REACTIONS (1)
  - PREMATURE BABY [None]
